FAERS Safety Report 14352480 (Version 3)
Quarter: 2018Q3

REPORT INFORMATION
  Report Type: Spontaneous
  Country: US (occurrence: US)
  Receive Date: 20180104
  Receipt Date: 20180905
  Transmission Date: 20181010
  Serious: Yes (Hospitalization)
  Sender: FDA-Public Use
  Company Number: US-ACTELION-A-US2018-165195

PATIENT
  Age: 65 Year
  Sex: Female

DRUGS (2)
  1. RAMIPRIL. [Concomitant]
     Active Substance: RAMIPRIL
  2. OPSUMIT [Suspect]
     Active Substance: MACITENTAN
     Indication: PULMONARY ARTERIAL HYPERTENSION
     Dosage: 10 MG, QD
     Route: 048
     Dates: start: 20140822

REACTIONS (6)
  - Upper respiratory tract infection [Unknown]
  - Respiratory tract infection [Unknown]
  - Dyspnoea [Unknown]
  - Hypotension [Unknown]
  - Cough [Unknown]
  - Drug dose omission [Unknown]
